FAERS Safety Report 5056190-3 (Version None)
Quarter: 2006Q2

REPORT INFORMATION
  Report Type: 
  Country: None (occurrence: None)
  Receive Date: 20060616
  Receipt Date: 20051116
  Transmission Date: 20061013
  Serious: Yes (Hospitalization)
  Sender: FDA-Public Use
  Company Number: PHEH2005US12638

PATIENT
  Age: 81 Year
  Sex: Male

DRUGS (1)
  1. EXELON [Suspect]
     Indication: DEMENTIA ALZHEIMER'S TYPE
     Dosage: 10 MG DAILY, ORAL
     Route: 048
     Dates: end: 20050904

REACTIONS (2)
  - FALL [None]
  - HEART RATE DECREASED [None]
